FAERS Safety Report 8269669-8 (Version None)
Quarter: 2012Q2

REPORT INFORMATION
  Report Type: 
  Country: None (occurrence: None)
  Receive Date: 20120410
  Receipt Date: 20120404
  Transmission Date: 20120825
  Serious: Yes (Other)
  Sender: FDA-Public Use
  Company Number: US-AMGEN-USASP2012021462

PATIENT
  Sex: Male

DRUGS (5)
  1. ARANESP [Suspect]
     Indication: ANAEMIA
     Dosage: 200 UNK, PRN
  2. VICTRELIS [Concomitant]
  3. PEGASYS [Concomitant]
  4. ARANESP [Suspect]
     Indication: HEPATITIS C
  5. RIBAVIRIN [Concomitant]

REACTIONS (1)
  - HYPOPNOEA [None]
